FAERS Safety Report 8151536-1 (Version None)
Quarter: 2012Q1

REPORT INFORMATION
  Report Type: 
  Country: None (occurrence: None)
  Receive Date: 20120220
  Receipt Date: 20120215
  Transmission Date: 20120608
  Serious: Yes (Hospitalization)
  Sender: FDA-Public Use
  Company Number: MX-ROCHE-1040735

PATIENT
  Sex: Female
  Weight: 60 kg

DRUGS (3)
  1. XENICAL [Suspect]
     Route: 048
     Dates: start: 20120108, end: 20120114
  2. XENICAL [Suspect]
     Route: 048
     Dates: start: 20111225, end: 20111231
  3. XENICAL [Suspect]
     Indication: PRODUCT USED FOR UNKNOWN INDICATION
     Route: 048
     Dates: start: 20111201, end: 20120107

REACTIONS (1)
  - CHOLECYSTITIS [None]
